FAERS Safety Report 8314945-3 (Version None)
Quarter: 2012Q2

REPORT INFORMATION
  Report Type: 
  Country: None (occurrence: None)
  Receive Date: 20120426
  Receipt Date: 20120417
  Transmission Date: 20120825
  Serious: Yes (Hospitalization, Other)
  Sender: FDA-Public Use
  Company Number: US-MERCK-1108USA02955

PATIENT
  Age: 62 Year
  Sex: Female
  Weight: 61 kg

DRUGS (6)
  1. METHOTREXATE [Concomitant]
     Route: 065
     Dates: start: 19900101
  2. ENBREL [Concomitant]
     Route: 065
     Dates: start: 20060101
  3. FOSAMAX [Suspect]
     Route: 048
     Dates: start: 20080101, end: 20090201
  4. HORMONES (UNSPECIFIED) [Concomitant]
     Route: 065
     Dates: start: 19800101, end: 20060101
  5. RELAFEN [Concomitant]
     Route: 065
     Dates: start: 19800101
  6. FOSAMAX [Suspect]
     Indication: OSTEOPENIA
     Route: 048
     Dates: start: 20000508, end: 20080101

REACTIONS (33)
  - FRACTURE NONUNION [None]
  - NAUSEA [None]
  - NASAL CONGESTION [None]
  - HYPERLIPIDAEMIA [None]
  - OSTEOARTHRITIS [None]
  - FATIGUE [None]
  - ABDOMINAL PAIN UPPER [None]
  - FEMUR FRACTURE [None]
  - DEVICE FAILURE [None]
  - FALL [None]
  - DEHYDRATION [None]
  - HORMONE LEVEL ABNORMAL [None]
  - RHINORRHOEA [None]
  - SPINAL OSTEOARTHRITIS [None]
  - IMPAIRED HEALING [None]
  - GASTROOESOPHAGEAL REFLUX DISEASE [None]
  - TENDONITIS [None]
  - ANAEMIA POSTOPERATIVE [None]
  - ARTHROPATHY [None]
  - ARTHRALGIA [None]
  - ROTATOR CUFF SYNDROME [None]
  - RHEUMATOID NODULE [None]
  - BLADDER DISORDER [None]
  - MUSCULAR WEAKNESS [None]
  - INFLUENZA [None]
  - VOMITING [None]
  - BURSITIS [None]
  - CATARACT [None]
  - CELLULITIS [None]
  - ASTHENIA [None]
  - DEPRESSION [None]
  - ADVERSE DRUG REACTION [None]
  - DIVERTICULUM INTESTINAL [None]
